FAERS Safety Report 8500936-6 (Version None)
Quarter: 2012Q3

REPORT INFORMATION
  Report Type: 
  Country: None (occurrence: None)
  Receive Date: 20120710
  Receipt Date: 20120709
  Transmission Date: 20120928
  Serious: Yes (Other)
  Sender: FDA-Public Use
  Company Number: CN-BAYER-2012-067861

PATIENT
  Age: 80 Year
  Sex: Male
  Weight: 49.887 kg

DRUGS (1)
  1. AVELOX [Suspect]
     Indication: LUNG INFECTION
     Dosage: 400 MG, QD
     Dates: start: 20111119, end: 20111119

REACTIONS (1)
  - SCHIZOPHRENIFORM DISORDER [None]
